FAERS Safety Report 9466628 (Version 2)
Quarter: 2014Q1

REPORT INFORMATION
  Report Type: Spontaneous
  Country: AU (occurrence: AU)
  Receive Date: 20130820
  Receipt Date: 20140227
  Transmission Date: 20141002
  Serious: Yes (Other)
  Sender: FDA-Public Use
  Company Number: PHHY2013AU085815

PATIENT
  Sex: Male

DRUGS (1)
  1. LAMISIL [Suspect]
     Indication: ONYCHOMYCOSIS
     Dosage: UNK UKN, UNK
     Route: 048
     Dates: start: 201304

REACTIONS (5)
  - Substance-induced psychotic disorder [Recovered/Resolved]
  - Systemic lupus erythematosus rash [Recovered/Resolved]
  - Butterfly rash [Recovered/Resolved]
  - Blister [Recovered/Resolved]
  - Skin exfoliation [Recovered/Resolved]
